FAERS Safety Report 17816117 (Version 12)
Quarter: 2021Q3

REPORT INFORMATION
  Report Type: Spontaneous
  Country: US (occurrence: US)
  Receive Date: 20200522
  Receipt Date: 20210809
  Transmission Date: 20211014
  Serious: Yes (Hospitalization, Other)
  Sender: FDA-Public Use
  Company Number: US-GLAXOSMITHKLINE-US2020AMR084008

PATIENT
  Age: 55 Year
  Sex: Female

DRUGS (7)
  1. ZEJULA [Suspect]
     Active Substance: NIRAPARIB
     Dosage: 100 MG, QD
  2. ZEJULA [Suspect]
     Active Substance: NIRAPARIB
     Dosage: 100 MG
  3. ZEJULA [Suspect]
     Active Substance: NIRAPARIB
     Dosage: 100 MG, QD
     Dates: start: 20210419
  4. ZEJULA [Suspect]
     Active Substance: NIRAPARIB
     Dosage: 100 MG, QD
     Route: 048
     Dates: start: 20210409
  5. ZEJULA [Suspect]
     Active Substance: NIRAPARIB
     Indication: ENDOMETRIAL CANCER
     Dosage: 100 MG, DAILY
     Route: 065
     Dates: start: 20191001
  6. ZEJULA [Suspect]
     Active Substance: NIRAPARIB
     Dosage: 100 MG, DAILY
     Route: 065
     Dates: start: 20200207
  7. ZEJULA [Suspect]
     Active Substance: NIRAPARIB
     Dosage: 100 MG, QD

REACTIONS (16)
  - Product use in unapproved indication [Unknown]
  - Hallucination, auditory [Unknown]
  - Vaginal haemorrhage [Not Recovered/Not Resolved]
  - Memory impairment [Unknown]
  - Chest X-ray abnormal [Unknown]
  - Underdose [Unknown]
  - Weight decreased [Unknown]
  - Influenza [Unknown]
  - Rectal haemorrhage [Not Recovered/Not Resolved]
  - Balance disorder [Unknown]
  - Tremor [Unknown]
  - Adverse drug reaction [Unknown]
  - Hernia repair [Unknown]
  - Staphylococcal infection [Unknown]
  - Middle insomnia [Unknown]
  - Abdominal distension [Unknown]

NARRATIVE: CASE EVENT DATE: 20200817
